FAERS Safety Report 17588087 (Version 1)
Quarter: 2020Q1

REPORT INFORMATION
  Report Type: Spontaneous
  Country: DE (occurrence: DE)
  Receive Date: 20200326
  Receipt Date: 20200326
  Transmission Date: 20200409
  Serious: Yes (Hospitalization)
  Sender: FDA-Public Use
  Company Number: DE-PFIZER INC-2020128815

PATIENT
  Age: 33 Month
  Sex: Female
  Weight: 15 kg

DRUGS (3)
  1. URSOFALK [Concomitant]
     Active Substance: URSODIOL
     Dosage: 150 MG  EVERY DAYS 2 SEPARATED DOSES
     Route: 048
  2. DEKRISTOL [Concomitant]
     Active Substance: CHOLECALCIFEROL
     Indication: PROPHYLAXIS
     Dosage: 1000 IU, 1X/DAY
     Route: 048
  3. SIROLIMUS. [Suspect]
     Active Substance: SIROLIMUS
     Indication: LIVER TRANSPLANT
     Dosage: 0.3 MG, 1X/DAY
     Route: 048

REACTIONS (6)
  - Product use in unapproved indication [Unknown]
  - Laryngitis [Recovered/Resolved]
  - Dysphonia [Recovered/Resolved]
  - Off label use [Unknown]
  - Dyspnoea [Recovered/Resolved]
  - Stridor [Recovered/Resolved]

NARRATIVE: CASE EVENT DATE: 20191027
